FAERS Safety Report 9306712 (Version 1)
Quarter: 2013Q2

REPORT INFORMATION
  Report Type: Spontaneous
  Country: US (occurrence: US)
  Receive Date: 20130523
  Receipt Date: 20130523
  Transmission Date: 20140414
  Serious: No
  Sender: FDA-Public Use
  Company Number: US-ASTRAZENECA-2013SE32104

PATIENT
  Sex: Female

DRUGS (5)
  1. OMEPRAZOLE [Suspect]
     Indication: GASTROOESOPHAGEAL REFLUX DISEASE
     Route: 048
  2. NAPROXEN [Suspect]
     Indication: OESOPHAGEAL IRRITATION
     Route: 065
  3. PROVELLA [Concomitant]
     Indication: FUNGAL INFECTION
  4. CO-ENZYME Q10 [Concomitant]
  5. TURMERIC [Concomitant]

REACTIONS (4)
  - Gastrooesophageal reflux disease [Recovering/Resolving]
  - Thinking abnormal [Unknown]
  - Abdominal pain upper [Unknown]
  - Drug effect decreased [Not Recovered/Not Resolved]
